FAERS Safety Report 12850710 (Version 2)
Quarter: 2016Q4

REPORT INFORMATION
  Report Type: Spontaneous
  Country: US (occurrence: US)
  Receive Date: 20161014
  Receipt Date: 20161108
  Transmission Date: 20170207
  Serious: Yes (Hospitalization)
  Sender: FDA-Public Use
  Company Number: US-MAYNE PHARMA INC.-2016MYN000671

PATIENT
  Age: 69 Year
  Sex: Male

DRUGS (4)
  1. CLOZAPINE. [Suspect]
     Active Substance: CLOZAPINE
     Indication: SCHIZOPHRENIA
     Dosage: 300 MG, QHS
     Dates: start: 201407, end: 20160929
  2. DOCUSATE [Concomitant]
     Active Substance: DOCUSATE
     Dosage: 500 MG, QD
  3. SENNA                              /00142201/ [Concomitant]
     Active Substance: SENNA LEAF
     Dosage: 8.6 MG (2 TABLETS DAILY)
  4. HYDROCODONE BITARTRATE AND ACETAMINOPHEN [Concomitant]
     Active Substance: ACETAMINOPHEN\HYDROCODONE BITARTRATE
     Indication: PAIN
     Dosage: 5MG/325MG Q8H

REACTIONS (13)
  - Somnolence [Unknown]
  - Chest pain [Unknown]
  - Faecal vomiting [Unknown]
  - Decreased appetite [Unknown]
  - Pain [Unknown]
  - Small intestinal obstruction [Unknown]
  - Weight decreased [Unknown]
  - Unresponsive to stimuli [Unknown]
  - Bed rest [Not Recovered/Not Resolved]
  - Fall [Unknown]
  - Pneumonia aspiration [Unknown]
  - Dysphagia [Not Recovered/Not Resolved]
  - Vomiting [Unknown]

NARRATIVE: CASE EVENT DATE: 201605
